FAERS Safety Report 18519264 (Version 2)
Quarter: 2021Q1

REPORT INFORMATION
  Report Type: Spontaneous
  Country: US (occurrence: US)
  Receive Date: 20201118
  Receipt Date: 20210303
  Transmission Date: 20210419
  Serious: No
  Sender: FDA-Public Use
  Company Number: US-STRONGBRIDGE BIOPHARMA-2020-STR-000294

PATIENT

DRUGS (1)
  1. KEVEYIS [Suspect]
     Active Substance: DICHLORPHENAMIDE
     Indication: FAMILIAL PERIODIC PARALYSIS
     Dosage: 50 MG, QD
     Route: 048
     Dates: start: 20201103

REACTIONS (5)
  - Disease recurrence [Recovering/Resolving]
  - Muscular weakness [Recovering/Resolving]
  - Somnolence [Recovering/Resolving]
  - Paraesthesia [Recovering/Resolving]
  - Muscular weakness [Recovered/Resolved]

NARRATIVE: CASE EVENT DATE: 20201110
